FAERS Safety Report 4301444-9 (Version None)
Quarter: 2004Q1

REPORT INFORMATION
  Report Type: 
  Country: None (occurrence: None)
  Receive Date: 20040219
  Receipt Date: 20040206
  Transmission Date: 20041129
  Serious: Yes (Other)
  Sender: FDA-Public Use
  Company Number: HQWYE855906FEB04

PATIENT
  Sex: Male

DRUGS (1)
  1. RIFUN (PANTOPRAZOLE, TABLET, DELAYED RELEASE) [Suspect]
     Dosage: ORAL
     Route: 048

REACTIONS (3)
  - DRUG INTERACTION [None]
  - RASH [None]
  - SWELLING FACE [None]
